FAERS Safety Report 6379032-2 (Version None)
Quarter: 2009Q3

REPORT INFORMATION
  Report Type: 
  Country: None (occurrence: None)
  Receive Date: 20090928
  Receipt Date: 20090923
  Transmission Date: 20100115
  Serious: Yes (Life-Threatening, Hospitalization, Disabling, Other)
  Sender: FDA-Public Use
  Company Number: PHEH2009US11094

PATIENT
  Sex: Female
  Weight: 72.562 kg

DRUGS (26)
  1. RECLAST [Suspect]
     Indication: OSTEOPOROSIS
     Dosage: 5 MG, UNK
     Route: 042
     Dates: start: 20090615, end: 20090615
  2. ASPIRIN [Concomitant]
     Dosage: UNK
  3. ATENOLOL [Concomitant]
     Dosage: 25 MG, QD
  4. WELLBUTRIN XL [Concomitant]
     Dosage: UNK
  5. BENTYL [Concomitant]
     Dosage: 10 MG, UNK
  6. CRESTOR [Concomitant]
     Dosage: UNK
  7. REGLAN [Concomitant]
     Dosage: 10 MG, 30 MIN BEFORE MEALS
  8. MORPHINE SULFATE [Concomitant]
     Dosage: UNK
  9. PREDNISONE [Concomitant]
     Dosage: UNK
  10. ZOLOFT [Concomitant]
     Dosage: 100 MG, QD
  11. ZETIA [Concomitant]
     Dosage: 10 MG, UNK
  12. LEVOXYL [Concomitant]
     Dosage: 25 MG, UNK
  13. ELAVIL [Concomitant]
     Dosage: 100 MG, UNK
  14. SEPTRA [Concomitant]
     Dosage: UNK
  15. KLONOPIN [Concomitant]
     Dosage: UNK
  16. IMODIUM [Concomitant]
     Dosage: UNK
  17. ALBUTEROL [Concomitant]
     Dosage: UNK
  18. OMEPRAZOLE [Concomitant]
     Dosage: UNK
  19. MULTI-VITAMINS [Concomitant]
     Dosage: UNK
  20. SULFONAMIDES [Concomitant]
  21. IMMUNOSUPPRESSANTS [Concomitant]
  22. CALCIUM [Concomitant]
  23. VITAMIN D3 [Concomitant]
  24. FOSAMAX [Concomitant]
     Dosage: 70 MG, UNK
  25. BACTRIM DS [Concomitant]
  26. FLUTICASONE [Concomitant]
     Dosage: UNK
     Route: 045

REACTIONS (9)
  - BLOOD CHLORIDE DECREASED [None]
  - BLOOD CREATINE PHOSPHOKINASE INCREASED [None]
  - BLOOD PH DECREASED [None]
  - BLOOD POTASSIUM DECREASED [None]
  - BLOOD SODIUM DECREASED [None]
  - CONFUSIONAL STATE [None]
  - HAEMOGLOBIN DECREASED [None]
  - LETHARGY [None]
  - RENAL FAILURE ACUTE [None]
